FAERS Safety Report 4619210-3 (Version None)
Quarter: 2005Q2

REPORT INFORMATION
  Report Type: 
  Country: None (occurrence: None)
  Receive Date: 20050321
  Receipt Date: 20040902
  Transmission Date: 20051028
  Serious: Yes (Death, Hospitalization)
  Sender: FDA-Public Use
  Company Number: 2004-09-0084

PATIENT
  Age: 55 Year
  Sex: Male
  Weight: 97.5234 kg

DRUGS (5)
  1. PEG-INTRON [Suspect]
     Indication: HEPATITIS C
     Dosage: SUBCUTANEOUS
     Route: 058
     Dates: start: 20040709, end: 20040831
  2. RIBASPHERE [Concomitant]
  3. ALDACTONE [Concomitant]
  4. LEXAPRO [Concomitant]
  5. SONATA [Concomitant]

REACTIONS (1)
  - INTESTINAL ISCHAEMIA [None]
